FAERS Safety Report 23350319 (Version 1)
Quarter: 2023Q4

REPORT INFORMATION
  Report Type: Other
  Country: US (occurrence: None)
  Receive Date: 20231229
  Receipt Date: 20231229
  Transmission Date: 20240109
  Serious: Yes (Hospitalization)
  Sender: FDA-Public Use
  Company Number: US-ROCHE-3481447

PATIENT
  Age: 65 Year
  Sex: Female
  Weight: 61.744 kg

DRUGS (1)
  1. OCREVUS [Suspect]
     Active Substance: OCRELIZUMAB
     Indication: Relapsing multiple sclerosis
     Dosage: MOST RECENT DOSE /JUN/2023
     Route: 042
     Dates: start: 2019

REACTIONS (5)
  - Pneumonia [Recovered/Resolved]
  - COVID-19 [Recovered/Resolved]
  - Dyspnoea [Recovered/Resolved]
  - Antibody test abnormal [Not Recovered/Not Resolved]
  - Illness [Unknown]

NARRATIVE: CASE EVENT DATE: 20230601
